FAERS Safety Report 12496564 (Version 2)
Quarter: 2016Q3

REPORT INFORMATION
  Report Type: Report from Study
  Country: US (occurrence: US)
  Receive Date: 20160624
  Receipt Date: 20160706
  Transmission Date: 20161109
  Serious: Yes (Other)
  Sender: FDA-Public Use
  Company Number: US-ABBVIE-16K-163-1654717-00

PATIENT
  Age: 49 Year
  Sex: Female
  Weight: 71.73 kg

DRUGS (2)
  1. HUMIRA [Suspect]
     Active Substance: ADALIMUMAB
     Indication: PSORIASIS
     Dosage: SEALANT
     Route: 058
     Dates: start: 201507
  2. LISINOPRIL. [Concomitant]
     Active Substance: LISINOPRIL
     Indication: PRODUCT USED FOR UNKNOWN INDICATION

REACTIONS (5)
  - Pruritus allergic [Unknown]
  - Skin irritation [Unknown]
  - Psoriasis [Not Recovered/Not Resolved]
  - Colon cancer [Unknown]
  - Flushing [Unknown]

NARRATIVE: CASE EVENT DATE: 201605
